FAERS Safety Report 13653143 (Version 1)
Quarter: 2017Q2

REPORT INFORMATION
  Report Type: Spontaneous
  Country: US (occurrence: US)
  Receive Date: 20170614
  Receipt Date: 20170614
  Transmission Date: 20170830
  Serious: No
  Sender: FDA-Public Use
  Company Number: US-ROCHE-1360493

PATIENT
  Sex: Male

DRUGS (4)
  1. XELODA [Suspect]
     Active Substance: CAPECITABINE
     Indication: COLORECTAL CANCER METASTATIC
     Route: 065
     Dates: start: 20140221
  2. 5-FU [Concomitant]
     Active Substance: FLUOROURACIL
     Indication: COLORECTAL CANCER METASTATIC
  3. LEUCOVORIN. [Concomitant]
     Active Substance: LEUCOVORIN
     Indication: COLORECTAL CANCER METASTATIC
  4. AVASTIN [Suspect]
     Active Substance: BEVACIZUMAB
     Indication: COLORECTAL CANCER METASTATIC
     Route: 065

REACTIONS (14)
  - Pruritus [Unknown]
  - Nail disorder [Unknown]
  - Abdominal pain upper [Unknown]
  - Fatigue [Unknown]
  - Diarrhoea [Unknown]
  - Musculoskeletal chest pain [Unknown]
  - Decreased appetite [Unknown]
  - Myalgia [Unknown]
  - Back pain [Unknown]
  - Dizziness [Unknown]
  - Neoplasm [Unknown]
  - Arthralgia [Unknown]
  - Constipation [Unknown]
  - Asthenia [Unknown]
